FAERS Safety Report 22177302 (Version 1)
Quarter: 2023Q2

REPORT INFORMATION
  Report Type: Spontaneous
  Country: US (occurrence: None)
  Receive Date: 20230405
  Receipt Date: 20230405
  Transmission Date: 20230721
  Serious: No
  Sender: FDA-Public Use
  Company Number: None

PATIENT
  Age: 65 Year
  Sex: Female
  Weight: 72 kg

DRUGS (8)
  1. OSPHENA [Suspect]
     Active Substance: OSPEMIFENE
     Indication: Vulvovaginal dryness
     Dosage: OTHER QUANTITY : 1 TABLET(S);?OTHER FREQUENCY : EVERY DAY;?
     Route: 048
     Dates: start: 20230201, end: 20230405
  2. HYDROCHLOROTHIAZIDE [Concomitant]
     Active Substance: HYDROCHLOROTHIAZIDE
  3. EZETIMIBE [Concomitant]
     Active Substance: EZETIMIBE
  4. ALIVE MULTI VITAMIN FOR WOMEN 50+ [Concomitant]
  5. CALTRATE 600 +D3 [Concomitant]
  6. NATURE MADE D3 [Concomitant]
  7. 21 CENTURY FISH OIL [Concomitant]
  8. OMEGA-3 ACIDS [Concomitant]
     Active Substance: OMEGA-3 FATTY ACIDS

REACTIONS (9)
  - Alopecia [None]
  - Dizziness [None]
  - Weight increased [None]
  - Headache [None]
  - Pruritus [None]
  - Hot flush [None]
  - Rash [None]
  - Hyperhidrosis [None]
  - Pain in extremity [None]

NARRATIVE: CASE EVENT DATE: 20230405
